FAERS Safety Report 5716184-9 (Version None)
Quarter: 2008Q2

REPORT INFORMATION
  Report Type: 
  Country: None (occurrence: None)
  Receive Date: 20080424
  Receipt Date: 20080414
  Transmission Date: 20081010
  Serious: Yes (Other)
  Sender: FDA-Public Use
  Company Number: DE-JNJFOC-20080403771

PATIENT
  Sex: Female

DRUGS (1)
  1. IONSYS [Suspect]
     Indication: PROCEDURAL PAIN
     Route: 044

REACTIONS (2)
  - APPLICATION SITE BURN [None]
  - APPLICATION SITE ERYTHEMA [None]
